FAERS Safety Report 7622231-X (Version None)
Quarter: 2011Q3

REPORT INFORMATION
  Report Type: 
  Country: None (occurrence: None)
  Receive Date: 20110720
  Receipt Date: 20110606
  Transmission Date: 20111222
  Serious: Yes (Other)
  Sender: FDA-Public Use
  Company Number: US-BAYER-2011-007733

PATIENT
  Age: 46 Year
  Sex: Female
  Weight: 71.655 kg

DRUGS (13)
  1. YASMIN [Suspect]
     Indication: CONTRACEPTION
     Dosage: UNK
     Route: 048
     Dates: start: 20060301, end: 20080901
  2. VICODIN [Concomitant]
  3. ACETAMINOPHEN [Concomitant]
  4. AMOXICILLIN [Concomitant]
     Indication: HELICOBACTER INFECTION
     Dosage: UNK
     Dates: start: 20081001
  5. CLARITHROMYCIN [Concomitant]
     Indication: HELICOBACTER INFECTION
     Dosage: UNK
     Dates: start: 20081001
  6. ZANTAC [Concomitant]
  7. ZOLOFT [Concomitant]
     Indication: ANXIETY
     Dosage: UNK
     Dates: start: 20080923
  8. PAROXETINE HCL [Concomitant]
     Indication: ANXIETY
     Dosage: UNK
     Dates: start: 20081209
  9. OMEPRAZOLE [Concomitant]
  10. FERROUS SULFATE TAB [Concomitant]
  11. NAPROXEN [Concomitant]
  12. ZOLOFT [Concomitant]
     Indication: DEPRESSION
  13. PAROXETINE HCL [Concomitant]
     Indication: DEPRESSION

REACTIONS (10)
  - CHOLECYSTITIS [None]
  - BILE DUCT STONE [None]
  - CHOLECYSTITIS CHRONIC [None]
  - PAIN [None]
  - FEAR [None]
  - GALLBLADDER DISORDER [None]
  - DEPRESSION [None]
  - CHOLELITHIASIS [None]
  - MAJOR DEPRESSION [None]
  - ANXIETY [None]
